FAERS Safety Report 7162417-4 (Version None)
Quarter: 2010Q4

REPORT INFORMATION
  Report Type: 
  Country: None (occurrence: None)
  Receive Date: 20101215
  Receipt Date: 20101208
  Transmission Date: 20110411
  Serious: Yes (Other)
  Sender: FDA-Public Use
  Company Number: IT-ABBOTT-10P-083-0678801-00

PATIENT
  Sex: Female

DRUGS (5)
  1. DEPAKENE [Suspect]
     Indication: BIPOLAR DISORDER
     Route: 048
     Dates: start: 20100501, end: 20100801
  2. DEPAKENE [Suspect]
     Indication: PERSONALITY DISORDER
  3. CLONAZEPAM [Concomitant]
     Indication: PRODUCT USED FOR UNKNOWN INDICATION
  4. QUETIAPINE FUMARATE [Concomitant]
     Indication: PRODUCT USED FOR UNKNOWN INDICATION
  5. SSRI [Concomitant]
     Indication: PRODUCT USED FOR UNKNOWN INDICATION

REACTIONS (2)
  - ANAEMIA [None]
  - APLASIA PURE RED CELL [None]
